FAERS Safety Report 5742986-9 (Version None)
Quarter: 2008Q2

REPORT INFORMATION
  Report Type: 
  Country: None (occurrence: None)
  Receive Date: 20080519
  Receipt Date: 20080508
  Transmission Date: 20081010
  Serious: Yes (Other)
  Sender: FDA-Public Use
  Company Number: US-SANOFI-SYNTHELABO-A03200801775

PATIENT
  Age: 55 Year
  Sex: Male

DRUGS (4)
  1. AVAPRO [Concomitant]
     Indication: DRUG USE FOR UNKNOWN INDICATION
     Dosage: UNK
     Route: 065
  2. ZOCOR [Concomitant]
     Indication: DRUG USE FOR UNKNOWN INDICATION
     Dosage: UNK
     Route: 065
  3. TOPROL-XL [Concomitant]
     Dosage: UNK
     Route: 065
  4. PLAVIX [Suspect]
     Indication: CARDIAC OPERATION
     Route: 048

REACTIONS (2)
  - DEEP VEIN THROMBOSIS [None]
  - ULCER [None]
